FAERS Safety Report 6522266-4 (Version None)
Quarter: 2009Q4

REPORT INFORMATION
  Report Type: 
  Country: None (occurrence: None)
  Receive Date: 20091230
  Receipt Date: 20091224
  Transmission Date: 20100525
  Serious: Yes (Life-Threatening, Hospitalization)
  Sender: FDA-Public Use
  Company Number: GXKR2009US13829

PATIENT
  Age: 49 Year
  Sex: Male

DRUGS (5)
  1. ROCURONIUM BROMIDE [Suspect]
     Indication: SEDATION
     Dosage: 1.2 MG/KG, UNK
     Route: 065
  2. ROCURONIUM BROMIDE [Suspect]
     Dosage: 50 MG, UNK
     Route: 042
  3. PROPOFOL [Concomitant]
     Indication: SEDATION
     Dosage: 2 MG/KG, UNK
     Route: 065
  4. PROPOFOL [Concomitant]
     Route: 041
  5. FENTANYL-100 [Concomitant]
     Dosage: 2 UG/KG, UNK
     Route: 065

REACTIONS (7)
  - ARTERIOSPASM CORONARY [None]
  - BRADYCARDIA [None]
  - CARDIAC ARREST [None]
  - HYPOTENSION [None]
  - KOUNIS SYNDROME [None]
  - MYOCARDIAL ISCHAEMIA [None]
  - RESUSCITATION [None]
